FAERS Safety Report 5189815-2 (Version None)
Quarter: 2006Q4

REPORT INFORMATION
  Report Type: 
  Country: None (occurrence: None)
  Receive Date: 20061215
  Receipt Date: 20061207
  Transmission Date: 20070319
  Serious: Yes (Disabling)
  Sender: FDA-Public Use
  Company Number: 2006133216

PATIENT
  Age: 59 Year
  Sex: Male

DRUGS (3)
  1. ATARAX [Suspect]
     Dosage: 25 MG, INTRAMUSCULAR
     Route: 030
     Dates: start: 20060815
  2. ATROPINE SULFATE [Suspect]
     Dosage: 0.5 MG, INTRAMUSCULAR
     Route: 030
     Dates: start: 20060815
  3. HYOSCINE HBR HYT [Suspect]
     Dosage: 20 MG, INTRAMUSCULAR
     Route: 030
     Dates: start: 20060815

REACTIONS (4)
  - ACTIVITIES OF DAILY LIVING IMPAIRED [None]
  - MOVEMENT DISORDER [None]
  - MUSCLE ATROPHY [None]
  - PAIN IN EXTREMITY [None]
